FAERS Safety Report 8813493 (Version 3)
Quarter: 2013Q4

REPORT INFORMATION
  Report Type: Spontaneous
  Country: US (occurrence: US)
  Receive Date: 20120927
  Receipt Date: 20131028
  Transmission Date: 20140711
  Serious: Yes (Hospitalization)
  Sender: FDA-Public Use
  Company Number: US-AMGEN-USASP2012044758

PATIENT
  Age: 71 Year
  Sex: Female
  Weight: 47.73 kg

DRUGS (3)
  1. PROLIA [Suspect]
     Indication: OSTEOPOROSIS POSTMENOPAUSAL
     Dosage: UNK UNK, Q6MO
     Route: 065
     Dates: start: 20120126
  2. VITAMIN D                          /00107901/ [Concomitant]
  3. CALCIUM [Concomitant]

REACTIONS (19)
  - Joint swelling [Recovered/Resolved]
  - Abasia [Unknown]
  - Local swelling [Recovered/Resolved]
  - Joint effusion [Recovered/Resolved]
  - Inflammation [Not Recovered/Not Resolved]
  - Arthritis [Not Recovered/Not Resolved]
  - Cardiac disorder [Unknown]
  - Mobility decreased [Unknown]
  - Musculoskeletal stiffness [Unknown]
  - Immune system disorder [Unknown]
  - Heart rate increased [Unknown]
  - Hypersensitivity [Unknown]
  - Dyspnoea [Unknown]
  - Pain [Unknown]
  - Back pain [Recovered/Resolved]
  - Bone pain [Unknown]
  - Myalgia [Unknown]
  - Arthralgia [Not Recovered/Not Resolved]
  - Pain in extremity [Not Recovered/Not Resolved]
